FAERS Safety Report 7287235-8 (Version None)
Quarter: 2011Q1

REPORT INFORMATION
  Report Type: 
  Country: None (occurrence: None)
  Receive Date: 20110211
  Receipt Date: 20101221
  Transmission Date: 20110831
  Serious: Yes (Hospitalization, Other)
  Sender: FDA-Public Use
  Company Number: US-BAYER-201018966NA

PATIENT
  Sex: Female

DRUGS (9)
  1. ALBUTEROL [Concomitant]
  2. ACETAMINOPHEN AND OXYCODONE HCL [Concomitant]
  3. BUDESONIDE [Concomitant]
  4. YAZ [Suspect]
     Indication: PRODUCT USED FOR UNKNOWN INDICATION
     Route: 048
     Dates: start: 20071001, end: 20090101
  5. IBUPROFEN [Concomitant]
  6. ONDANSERTRON HCL [Concomitant]
  7. DOCUSATE SODIUM [Concomitant]
  8. PANTOPRAZOLE [Concomitant]
  9. LEUCOVORIN CALCIUM [Concomitant]

REACTIONS (2)
  - PULMONARY EMBOLISM [None]
  - GESTATIONAL TROPHOBLASTIC TUMOUR [None]
